FAERS Safety Report 9675618 (Version 1)
Quarter: 2013Q4

REPORT INFORMATION
  Report Type: Spontaneous
  Country: US (occurrence: US)
  Receive Date: 20131107
  Receipt Date: 20131107
  Transmission Date: 20140711
  Serious: Yes (Other)
  Sender: FDA-Public Use
  Company Number: US-ASTRAZENECA-2013SE80499

PATIENT
  Age: 55 Year
  Sex: Male
  Weight: 94.8 kg

DRUGS (8)
  1. BRILINTA [Suspect]
     Indication: STENT PLACEMENT
     Route: 048
     Dates: start: 201211
  2. BRILINTA [Suspect]
     Indication: STENT PLACEMENT
     Dosage: TID
     Route: 048
     Dates: start: 201305
  3. PRILOSEC [Suspect]
     Indication: GASTROOESOPHAGEAL REFLUX DISEASE
     Route: 048
  4. ASA [Concomitant]
  5. STATIN [Concomitant]
     Indication: BLOOD CHOLESTEROL ABNORMAL
     Dosage: 3 TIMES THE AMOUNT OF RECOMMENDED DOSE, DAILY
     Dates: start: 201211
  6. STATIN [Concomitant]
     Indication: BLOOD CHOLESTEROL ABNORMAL
     Dosage: NORMAL DOSE, DAILY
  7. STATIN [Concomitant]
     Indication: BLOOD CHOLESTEROL ABNORMAL
     Dosage: DOUBLE DOSE, DAILY
  8. STATIN [Concomitant]
     Indication: BLOOD CHOLESTEROL ABNORMAL
     Dosage: NORMAL DOSE, DAILY
     Dates: start: 201305

REACTIONS (10)
  - Rhabdomyolysis [Recovering/Resolving]
  - Neuropathy peripheral [Unknown]
  - Blood triglycerides increased [Unknown]
  - Pain in extremity [Unknown]
  - Chest pain [Unknown]
  - Gastrooesophageal reflux disease [Unknown]
  - Laboratory test abnormal [Unknown]
  - Dyspnoea [Unknown]
  - Contusion [Unknown]
  - Off label use [Unknown]
